FAERS Safety Report 18173846 (Version 2)
Quarter: 2020Q4

REPORT INFORMATION
  Report Type: Report from Study
  Country: US (occurrence: US)
  Receive Date: 20200819
  Receipt Date: 20201026
  Transmission Date: 20210113
  Serious: Yes (Other)
  Sender: FDA-Public Use
  Company Number: US-KYOWAKIRIN-2020BKK013257

PATIENT

DRUGS (1)
  1. NOURIANZ [Suspect]
     Active Substance: ISTRADEFYLLINE
     Indication: PRODUCT USED FOR UNKNOWN INDICATION
     Dosage: 20 MG
     Route: 065

REACTIONS (8)
  - Pollakiuria [Unknown]
  - Urinary incontinence [Unknown]
  - Therapy non-responder [Unknown]
  - Somnolence [Unknown]
  - Tremor [Not Recovered/Not Resolved]
  - Urine flow decreased [Unknown]
  - Hallucination [Unknown]
  - Cognitive disorder [Unknown]
